FAERS Safety Report 9399178 (Version 1)
Quarter: 2013Q3

REPORT INFORMATION
  Report Type: Report from Study
  Country: NL (occurrence: NL)
  Receive Date: 20130715
  Receipt Date: 20130715
  Transmission Date: 20140515
  Serious: Yes (Hospitalization)
  Sender: FDA-Public Use
  Company Number: NL-BRISTOL-MYERS SQUIBB COMPANY-16174609

PATIENT
  Age: 63 Year
  Sex: Male

DRUGS (3)
  1. SAXAGLIPTIN [Suspect]
     Indication: TYPE 2 DIABETES MELLITUS
     Dates: start: 20110118
  2. METFORMIN HCL [Suspect]
     Indication: TYPE 2 DIABETES MELLITUS
  3. ASPIRIN [Concomitant]
     Dosage: 1DF:LESSER THAN OR EQUAL TO 100MG

REACTIONS (2)
  - Postoperative wound infection [Recovered/Resolved]
  - Epididymitis [Recovered/Resolved]
